FAERS Safety Report 11212414 (Version 2)
Quarter: 2015Q3

REPORT INFORMATION
  Report Type: Spontaneous
  Country: DE (occurrence: DE)
  Receive Date: 20150623
  Receipt Date: 20150728
  Transmission Date: 20151125
  Serious: Yes (Hospitalization, Other)
  Sender: FDA-Public Use
  Company Number: DE-ROCHE-1595601

PATIENT
  Age: 79 Year
  Sex: Male
  Weight: 100 kg

DRUGS (5)
  1. PREDNISOLON [Concomitant]
     Active Substance: PREDNISOLONE
     Indication: PREMEDICATION
     Route: 042
     Dates: start: 20150506
  2. PARACETAMOL [Concomitant]
     Active Substance: ACETAMINOPHEN
     Indication: PREMEDICATION
     Route: 048
  3. TAVEGIL [Concomitant]
     Active Substance: CLEMASTINE FUMARATE
     Indication: PREMEDICATION
     Route: 042
     Dates: start: 20150506
  4. GAZYVARO [Suspect]
     Active Substance: OBINUTUZUMAB
     Indication: CHRONIC LYMPHOCYTIC LEUKAEMIA
     Route: 042
     Dates: start: 20150506
  5. RANITIC [Concomitant]
     Active Substance: RANITIDINE HYDROCHLORIDE
     Indication: PREMEDICATION
     Route: 042
     Dates: start: 20150506

REACTIONS (7)
  - Chest discomfort [Unknown]
  - Dyspnoea [Recovered/Resolved]
  - Muscle spasms [Unknown]
  - Blood pressure increased [Not Recovered/Not Resolved]
  - Skin discolouration [Recovered/Resolved]
  - Chills [Recovered/Resolved]
  - Muscle spasticity [Unknown]

NARRATIVE: CASE EVENT DATE: 20150506
